FAERS Safety Report 8000550-5 (Version None)
Quarter: 2011Q4

REPORT INFORMATION
  Report Type: 
  Country: None (occurrence: None)
  Receive Date: 20111222
  Receipt Date: 20111216
  Transmission Date: 20120403
  Serious: Yes (Hospitalization)
  Sender: FDA-Public Use
  Company Number: US-COVIDIEN/TYCO HEALTHCARE/MALLINCKRODT-T201102933

PATIENT
  Age: 62 Year
  Sex: Female

DRUGS (3)
  1. ACETAMINOPHEN AND HYDROCODONE BITARTRATE [Suspect]
     Dosage: 0-2 TABS PER DAY
  2. ACETAMINOPHEN AND HYDROCODONE BITARTRATE [Suspect]
     Indication: MYALGIA
     Dosage: 6-8 TABS PER DAY
  3. TACROLIMUS [Suspect]

REACTIONS (2)
  - DRUG INTERACTION [None]
  - LEUKOENCEPHALOPATHY [None]
